FAERS Safety Report 8530061-X (Version None)
Quarter: 2012Q3

REPORT INFORMATION
  Report Type: 
  Country: None (occurrence: None)
  Receive Date: 20120723
  Receipt Date: 20120718
  Transmission Date: 20120928
  Serious: Yes (Other)
  Sender: FDA-Public Use
  Company Number: PHHY2012BR054080

PATIENT
  Sex: Female

DRUGS (7)
  1. ALBUTEROL SULATE [Concomitant]
     Indication: DYSPNOEA
  2. CALCIUM CARBONATE [Concomitant]
     Indication: OSTEOPENIA
     Dosage: 300 MG, QD
     Route: 048
  3. OMEPRAZOLE [Concomitant]
     Indication: ABDOMINAL PAIN UPPER
     Dosage: 20 MG, QD
  4. AWAYAS [Concomitant]
     Indication: NASAL DISCOMFORT
  5. FORMOTEROL FUMARATE [Suspect]
     Indication: CHRONIC OBSTRUCTIVE PULMONARY DISEASE
     Dosage: TWICE A DAY
  6. CLARITIN-D [Concomitant]
     Indication: RHINITIS
     Dosage: ONE TABLET A DAY
  7. BAMIFIX [Concomitant]
     Indication: CHRONIC OBSTRUCTIVE PULMONARY DISEASE
     Dosage: 300 MG, BID

REACTIONS (1)
  - PNEUMONIA [None]
